FAERS Safety Report 4575443-6 (Version None)
Quarter: 2005Q1

REPORT INFORMATION
  Report Type: 
  Country: None (occurrence: None)
  Receive Date: 20050128
  Receipt Date: 20050128
  Transmission Date: 20050727
  Serious: Yes (Life-Threatening, Disabling)
  Sender: FDA-Public Use
  Company Number: None

PATIENT
  Age: 52 Year
  Sex: Male
  Weight: 95 kg

DRUGS (11)
  1. CLOFARABINE [Suspect]
     Indication: ACUTE MYELOID LEUKAEMIA RECURRENT
     Dosage: 80MG (40MG/KG)  IV 2DX5D
     Route: 042
     Dates: start: 20050112, end: 20050116
  2. CYTARABINE [Suspect]
     Indication: ACUTE MYELOID LEUKAEMIA RECURRENT
     Dosage: 2 GR(1 GRAM/M2/D)  IV QD X 5D
     Route: 042
     Dates: start: 20050111, end: 20050115
  3. MEROPENEM [Concomitant]
  4. AMBISOME [Concomitant]
  5. VALTREX [Concomitant]
  6. LEVAQUIN [Concomitant]
  7. PROPONIX [Concomitant]
  8. ALPRAZOLAM [Concomitant]
  9. HEPARIN [Concomitant]
  10. DARVON [Concomitant]
  11. COMPAZINE [Concomitant]

REACTIONS (8)
  - CELLULITIS [None]
  - DERMATITIS BULLOUS [None]
  - DERMATITIS EXFOLIATIVE [None]
  - FEBRILE NEUTROPENIA [None]
  - PAIN [None]
  - PNEUMONIA FUNGAL [None]
  - PYREXIA [None]
  - RASH [None]
